FAERS Safety Report 4269445-7 (Version None)
Quarter: 2004Q1

REPORT INFORMATION
  Report Type: 
  Country: None (occurrence: None)
  Receive Date: 20040112
  Receipt Date: 20040112
  Transmission Date: 20041129
  Serious: Yes (Hospitalization)
  Sender: FDA-Public Use
  Company Number: None

PATIENT
  Age: 71 Year
  Sex: Male

DRUGS (4)
  1. DOXYCYCLINE [Suspect]
     Indication: INFECTION
     Dosage: 100 MG BID
     Dates: start: 20030827
  2. TERAZOSIN HCL [Concomitant]
  3. SIMVASTASTATIN [Concomitant]
  4. ISOSORBIDE [Concomitant]

REACTIONS (1)
  - CONFUSIONAL STATE [None]
